FAERS Safety Report 21101542 (Version 1)
Quarter: 2022Q3

REPORT INFORMATION
  Report Type: Spontaneous
  Country: US (occurrence: US)
  Receive Date: 20220719
  Receipt Date: 20220719
  Transmission Date: 20221026
  Serious: Yes (Death, Other)
  Sender: FDA-Public Use
  Company Number: US-UPSHER-SMITH LABORATORIES, LLC-2022USL00479

PATIENT
  Age: 32 Year
  Sex: Female
  Weight: 65.76 kg

DRUGS (4)
  1. ISOTRETINOIN [Suspect]
     Active Substance: ISOTRETINOIN
     Indication: Acne
     Dosage: HIGHER DOSE (RELATIVE TO 40 MG Q1X/DAY)
     Route: 048
     Dates: start: 20211101
  2. ISOTRETINOIN [Suspect]
     Active Substance: ISOTRETINOIN
     Dosage: 40 MG, 1X/DAY
     Route: 048
     Dates: end: 20220415
  3. ZYRTEC [Concomitant]
     Active Substance: CETIRIZINE HYDROCHLORIDE
  4. PARAGARD T 380A [Concomitant]
     Active Substance: COPPER

REACTIONS (2)
  - Completed suicide [Fatal]
  - Mood altered [Recovered/Resolved]

NARRATIVE: CASE EVENT DATE: 20220415
